FAERS Safety Report 25568009 (Version 1)
Quarter: 2025Q3

REPORT INFORMATION
  Report Type: Spontaneous
  Country: US (occurrence: US)
  Receive Date: 20250716
  Receipt Date: 20250716
  Transmission Date: 20251021
  Serious: No
  Sender: AMGEN
  Company Number: US-AMGEN-USASP2025138374

PATIENT
  Sex: Male

DRUGS (2)
  1. KRYSTEXXA [Suspect]
     Active Substance: PEGLOTICASE
     Indication: Gout
     Route: 040
  2. KRYSTEXXA [Suspect]
     Active Substance: PEGLOTICASE
     Route: 040
     Dates: start: 20250709

REACTIONS (3)
  - Dysphonia [Unknown]
  - Blood uric acid abnormal [Unknown]
  - Gout [Unknown]
